FAERS Safety Report 5719343-4 (Version None)
Quarter: 2008Q2

REPORT INFORMATION
  Report Type: 
  Country: None (occurrence: None)
  Receive Date: 20080428
  Receipt Date: 20080417
  Transmission Date: 20081010
  Serious: Yes (Hospitalization)
  Sender: FDA-Public Use
  Company Number: IT-JNJFOC-20080405136

PATIENT
  Age: 39 Year
  Sex: Male

DRUGS (1)
  1. REMICADE [Suspect]
     Indication: PUSTULAR PSORIASIS
     Route: 042

REACTIONS (3)
  - ANGIOEDEMA [None]
  - INFUSION RELATED REACTION [None]
  - LOSS OF CONSCIOUSNESS [None]
